FAERS Safety Report 13304397 (Version 1)
Quarter: 2017Q1

REPORT INFORMATION
  Report Type: Other
  Country: IT (occurrence: IT)
  Receive Date: 20170308
  Receipt Date: 20170308
  Transmission Date: 20170428
  Serious: Yes (Other)
  Sender: FDA-Public Use
  Company Number: IT-MACLEODS PHARMACEUTICALS US LTD-MAC2017004388

PATIENT

DRUGS (2)
  1. ASPIRINA [Suspect]
     Active Substance: ASPIRIN
     Indication: THROMBOSIS PROPHYLAXIS
     Dosage: 100 MG, UNK
     Route: 065
     Dates: start: 201409
  2. CLOPIDOGREL [Suspect]
     Active Substance: CLOPIDOGREL BISULFATE
     Indication: THROMBOSIS PROPHYLAXIS
     Dosage: 250 MG, BID
     Route: 065
     Dates: start: 201409

REACTIONS (3)
  - Platelet aggregation inhibition [Unknown]
  - Haemorrhage [Unknown]
  - Drug ineffective [Unknown]
